FAERS Safety Report 19717210 (Version 1)
Quarter: 2021Q3

REPORT INFORMATION
  Report Type: Spontaneous
  Country: IN (occurrence: IN)
  Receive Date: 20210818
  Receipt Date: 20210818
  Transmission Date: 20211014
  Serious: Yes (Hospitalization)
  Sender: FDA-Public Use
  Company Number: IN-MYLANLABS-2021M1052837

PATIENT
  Age: 31 Year
  Sex: Female

DRUGS (4)
  1. CAFFEINE. [Suspect]
     Active Substance: CAFFEINE
     Indication: POST LUMBAR PUNCTURE SYNDROME
  2. CAFFEINE. [Suspect]
     Active Substance: CAFFEINE
     Indication: INTRACRANIAL HYPOTENSION
     Route: 065
  3. DEXAMETHASONE. [Suspect]
     Active Substance: DEXAMETHASONE
     Indication: POST LUMBAR PUNCTURE SYNDROME
  4. DEXAMETHASONE. [Suspect]
     Active Substance: DEXAMETHASONE
     Indication: INTRACRANIAL HYPOTENSION
     Dosage: UNK UNK, QW
     Route: 042

REACTIONS (1)
  - Drug ineffective [Unknown]
